FAERS Safety Report 6357022-3 (Version None)
Quarter: 2009Q3

REPORT INFORMATION
  Report Type: 
  Country: None (occurrence: None)
  Receive Date: 20090915
  Receipt Date: 20081020
  Transmission Date: 20100115
  Serious: No
  Sender: FDA-Public Use
  Company Number: US-ABBOTT-08P-163-0482844-00

PATIENT
  Sex: Female
  Weight: 68.1 kg

DRUGS (2)
  1. DEPAKOTE [Suspect]
     Indication: ABNORMAL BEHAVIOUR
     Route: 048
     Dates: start: 20080901, end: 20081019
  2. ASPIRIN [Concomitant]
     Indication: DRUG USE FOR UNKNOWN INDICATION
     Route: 048
     Dates: start: 20080901

REACTIONS (5)
  - CONTUSION [None]
  - HALLUCINATION [None]
  - NERVOUSNESS [None]
  - OBSESSIVE-COMPULSIVE DISORDER [None]
  - TREMOR [None]
